FAERS Safety Report 6417342-0 (Version None)
Quarter: 2009Q4

REPORT INFORMATION
  Report Type: 
  Country: None (occurrence: None)
  Receive Date: 20091028
  Receipt Date: 20091016
  Transmission Date: 20100525
  Serious: Yes (Death)
  Sender: FDA-Public Use
  Company Number: KR-PFIZER INC-2009284612

PATIENT
  Age: 9 Year

DRUGS (2)
  1. VORICONAZOLE [Suspect]
     Indication: ASPERGILLOSIS
     Dosage: 100 MG, 2X/DAY
     Route: 048
     Dates: start: 20080528, end: 20080610
  2. VORICONAZOLE [Suspect]
     Dosage: 100 MG, 2X/DAY
     Route: 048
     Dates: start: 20081106, end: 20090112

REACTIONS (1)
  - DEATH [None]
